FAERS Safety Report 6725893-4 (Version None)
Quarter: 2010Q2

REPORT INFORMATION
  Report Type: 
  Country: None (occurrence: None)
  Receive Date: 20100514
  Receipt Date: 20100503
  Transmission Date: 20101027
  Serious: Yes (Hospitalization, Other)
  Sender: FDA-Public Use
  Company Number: US-PFIZER INC-2009232668

PATIENT
  Sex: Female

DRUGS (1)
  1. DILANTIN-125 [Suspect]
     Dosage: 64 MG, UNK
     Route: 048
     Dates: start: 19560101

REACTIONS (17)
  - ANKLE FRACTURE [None]
  - CHEST WALL MASS [None]
  - FALL [None]
  - GAIT DISTURBANCE [None]
  - GINGIVAL HYPERPLASIA [None]
  - GOITRE [None]
  - HIP FRACTURE [None]
  - LIP SWELLING [None]
  - LOWER LIMB FRACTURE [None]
  - LYMPHADENOPATHY [None]
  - OSTEOPOROSIS [None]
  - PAIN [None]
  - SPINAL DEFORMITY [None]
  - TOOTH DISORDER [None]
  - UPPER EXTREMITY MASS [None]
  - UPPER LIMB FRACTURE [None]
  - WRIST FRACTURE [None]
